FAERS Safety Report 19086163 (Version 16)
Quarter: 2025Q2

REPORT INFORMATION
  Report Type: Spontaneous
  Country: US (occurrence: US)
  Receive Date: 20210402
  Receipt Date: 20250513
  Transmission Date: 20250716
  Serious: No
  Sender: PFIZER
  Company Number: US-PFIZER INC-2021330145

PATIENT
  Age: 70 Year
  Sex: Female
  Weight: 100.24 kg

DRUGS (5)
  1. XELJANZ XR [Suspect]
     Active Substance: TOFACITINIB CITRATE
     Indication: Rheumatoid arthritis
     Dosage: 11 MG, 1X/DAY
     Route: 048
  2. METHOTREXATE [Concomitant]
     Active Substance: METHOTREXATE
     Indication: Rheumatoid arthritis
     Dosage: 2.5 MILLIGRAMS, TWICE A DAY WEEKLY
  3. FOLIC ACID [Concomitant]
     Active Substance: FOLIC ACID
  4. ALBUTEROL [Concomitant]
     Active Substance: ALBUTEROL
  5. ANORO ELLIPTA [Concomitant]
     Active Substance: UMECLIDINIUM BROMIDE\VILANTEROL TRIFENATATE

REACTIONS (2)
  - Heart rate irregular [Unknown]
  - Pain [Unknown]
